FAERS Safety Report 5488947-9 (Version None)
Quarter: 2007Q4

REPORT INFORMATION
  Report Type: 
  Country: None (occurrence: None)
  Receive Date: 20071016
  Receipt Date: 20071002
  Transmission Date: 20080405
  Serious: Yes (Hospitalization)
  Sender: FDA-Public Use
  Company Number: 2007-03327

PATIENT
  Sex: Female
  Weight: 55 kg

DRUGS (15)
  1. VELCADE [Suspect]
     Indication: MULTIPLE MYELOMA
     Dosage: 1.00 MG/M2
     Dates: start: 20070910, end: 20070928
  2. CNT0328 [Suspect]
     Indication: MULTIPLE MYELOMA
     Dosage: 6.00 MG/KG
     Dates: start: 20070717, end: 20070925
  3. PREVISCAN (FLUINDIONE) [Concomitant]
  4. ACETAMINOPHEN [Concomitant]
  5. OMEPRAZOLE [Concomitant]
  6. LASIX [Concomitant]
  7. OXYCONTIN [Concomitant]
  8. OXYCODONE HCL [Concomitant]
  9. PRIMPERAN TAB [Concomitant]
  10. TRANSIPEG (MACROGOL) [Concomitant]
  11. SKENAN (MORPHINE SULFATE) [Concomitant]
  12. MORPHINE SULFATE [Suspect]
  13. NEXIUM [Concomitant]
  14. FORLAX (MACROGOL) [Concomitant]
  15. SMECTA (SMECTITE) [Concomitant]

REACTIONS (1)
  - LUNG DISORDER [None]
